FAERS Safety Report 25320319 (Version 2)
Quarter: 2025Q3

REPORT INFORMATION
  Report Type: Spontaneous
  Country: US (occurrence: US)
  Receive Date: 20250515
  Receipt Date: 20250805
  Transmission Date: 20251021
  Serious: Yes (Other)
  Sender: SANOFI AVENTIS
  Company Number: US-SA-2025SA136841

PATIENT
  Age: 10 Year
  Sex: Female

DRUGS (5)
  1. DUPIXENT [Suspect]
     Active Substance: DUPILUMAB
     Indication: Dermatitis atopic
     Dosage: 300 MG, QOW
     Route: 058
  2. ALBUTEROL SULFATE [Concomitant]
     Active Substance: ALBUTEROL SULFATE
  3. EPIPEN [Concomitant]
     Active Substance: EPINEPHRINE
  4. GUANFACINE [Concomitant]
     Active Substance: GUANFACINE
  5. FLONASE ALLERGY RELIEF [Concomitant]
     Active Substance: FLUTICASONE PROPIONATE

REACTIONS (4)
  - Pneumonia [Unknown]
  - Perioral dermatitis [Unknown]
  - Solar lentigo [Unknown]
  - Eczema [Unknown]
